FAERS Safety Report 21139526 (Version 8)
Quarter: 2023Q1

REPORT INFORMATION
  Report Type: Report from Study
  Country: FR (occurrence: FR)
  Receive Date: 20220727
  Receipt Date: 20230214
  Transmission Date: 20230418
  Serious: Yes (Other)
  Sender: FDA-Public Use
  Company Number: FR-GILEAD-2022-0591343

PATIENT
  Sex: Female
  Weight: 44 kg

DRUGS (8)
  1. SACITUZUMAB GOVITECAN-HZIY [Suspect]
     Active Substance: SACITUZUMAB GOVITECAN-HZIY
     Indication: Breast cancer metastatic
     Dosage: 10 MG/KG, C2 D1-D8
     Route: 042
     Dates: start: 20220506, end: 20220516
  2. SACITUZUMAB GOVITECAN-HZIY [Suspect]
     Active Substance: SACITUZUMAB GOVITECAN-HZIY
     Dosage: 10 MG/KG, C1 D1-D8
     Route: 042
     Dates: start: 20220415, end: 20220422
  3. SACITUZUMAB GOVITECAN-HZIY [Suspect]
     Active Substance: SACITUZUMAB GOVITECAN-HZIY
     Dosage: 10 MG/KG, C3 D1-D8
     Route: 042
     Dates: start: 20220610, end: 20220617
  4. SACITUZUMAB GOVITECAN-HZIY [Suspect]
     Active Substance: SACITUZUMAB GOVITECAN-HZIY
     Dosage: 10 MG/KG, C4 D1-D8
     Route: 042
     Dates: start: 20220701, end: 20220708
  5. SACITUZUMAB GOVITECAN-HZIY [Suspect]
     Active Substance: SACITUZUMAB GOVITECAN-HZIY
     Dosage: 10 MG/KG, C5 D1, C5 D8 CANCELLED
     Route: 042
     Dates: start: 20220722
  6. SACITUZUMAB GOVITECAN-HZIY [Suspect]
     Active Substance: SACITUZUMAB GOVITECAN-HZIY
     Dosage: DOSE REDUCTION TO 25%
     Route: 042
     Dates: start: 20220819
  7. SACITUZUMAB GOVITECAN-HZIY [Suspect]
     Active Substance: SACITUZUMAB GOVITECAN-HZIY
     Dosage: 7.5 MG/KG, C6D1,D8
     Route: 042
     Dates: start: 20220819, end: 20220826
  8. SACITUZUMAB GOVITECAN-HZIY [Suspect]
     Active Substance: SACITUZUMAB GOVITECAN-HZIY
     Dosage: 7.5 MG/KG, C7D1,D8
     Route: 042
     Dates: start: 20220909, end: 20220916

REACTIONS (5)
  - Disease progression [Unknown]
  - General physical condition abnormal [Recovering/Resolving]
  - Liver disorder [Recovering/Resolving]
  - Off label use [Unknown]
  - Drug resistance [Unknown]

NARRATIVE: CASE EVENT DATE: 20220728
